FAERS Safety Report 8125516-6 (Version None)
Quarter: 2012Q1

REPORT INFORMATION
  Report Type: 
  Country: None (occurrence: None)
  Receive Date: 20120209
  Receipt Date: 20120201
  Transmission Date: 20120608
  Serious: Yes (Hospitalization, Other)
  Sender: FDA-Public Use
  Company Number: PHHY2012GB008610

PATIENT
  Age: 52 Year
  Sex: Female

DRUGS (7)
  1. CLOZAPINE [Interacting]
     Dosage: UNK
     Dates: start: 20120123
  2. ACETAMINOPHEN [Concomitant]
     Dosage: 1 G, UNK
     Route: 048
  3. PAROXETINE [Suspect]
  4. CLOZAPINE [Interacting]
     Dosage: UNK
     Route: 048
     Dates: start: 20110204, end: 20111213
  5. VALPROATE SODIUM [Concomitant]
     Dosage: 300 MG, UNK
     Route: 048
  6. LORAZEPAM [Concomitant]
     Dosage: 1 MG, UNK
     Route: 048
  7. FOLIC ACID [Concomitant]
     Dosage: 5 MG, UNK
     Route: 048

REACTIONS (6)
  - TOXICITY TO VARIOUS AGENTS [None]
  - LYMPHOCYTE COUNT DECREASED [None]
  - DYSTONIA [None]
  - NEUTROPENIA [None]
  - DRUG LEVEL INCREASED [None]
  - DRUG INTERACTION [None]
